FAERS Safety Report 13614395 (Version 1)
Quarter: 2017Q2

REPORT INFORMATION
  Report Type: Spontaneous
  Country: AR (occurrence: AR)
  Receive Date: 20170606
  Receipt Date: 20170606
  Transmission Date: 20170830
  Serious: Yes (Death, Hospitalization)
  Sender: FDA-Public Use
  Company Number: AR-ACTELION-A-CH2017-154389

PATIENT
  Age: 19 Year
  Sex: Female

DRUGS (1)
  1. TRACLEER [Suspect]
     Active Substance: BOSENTAN
     Indication: PULMONARY ARTERIAL HYPERTENSION
     Dosage: UNK
     Route: 048
     Dates: start: 20140801, end: 20170525

REACTIONS (3)
  - Respiratory failure [Unknown]
  - Myocardial infarction [Fatal]
  - Haemoptysis [Unknown]

NARRATIVE: CASE EVENT DATE: 20170522
